FAERS Safety Report 19514128 (Version 1)
Quarter: 2021Q3

REPORT INFORMATION
  Report Type: Report from Study
  Country: IT (occurrence: IT)
  Receive Date: 20210709
  Receipt Date: 20210709
  Transmission Date: 20211014
  Serious: Yes (Other)
  Sender: FDA-Public Use
  Company Number: IT-MYLANLABS-2021M1040185

PATIENT
  Age: 91 Year
  Sex: Male

DRUGS (11)
  1. NITRODERM [Concomitant]
     Active Substance: NITROGLYCERIN
  2. APROVEL HCT [Concomitant]
     Dosage: 1 DOSAGE FORM
  3. AMIODARONE [Suspect]
     Active Substance: AMIODARONE
     Indication: PRODUCT USED FOR UNKNOWN INDICATION
     Dosage: 200 MILLIGRAM, QD
     Dates: start: 20200101, end: 20201126
  4. LEXOTAN [Concomitant]
     Active Substance: BROMAZEPAM
     Dosage: UNK
  5. LUVION                             /00252501/ [Concomitant]
     Active Substance: CANRENOIC ACID
     Dosage: 1 DOSAGE FORM
  6. LASIX [Concomitant]
     Active Substance: FUROSEMIDE
     Dosage: 125 MILLIGRAM
  7. PREGABALIN SANDOZ [Concomitant]
     Active Substance: PREGABALIN
     Dosage: 1 DOSAGE FORM
  8. PANTORC [Concomitant]
     Active Substance: PANTOPRAZOLE SODIUM
     Dosage: 1 DOSAGE FORM
  9. LIXIANA OD [Concomitant]
     Active Substance: EDOXABAN TOSYLATE
     Dosage: 1 DOSAGE FORM
  10. DILATREND AP [Suspect]
     Active Substance: CARVEDILOL
     Indication: PRODUCT USED FOR UNKNOWN INDICATION
     Dosage: 1 DOSAGE FORM, QD
     Dates: start: 20200101, end: 20201126
  11. LANTUS [Concomitant]
     Active Substance: INSULIN GLARGINE

REACTIONS (1)
  - Sinus bradycardia [Recovering/Resolving]

NARRATIVE: CASE EVENT DATE: 20201126
